FAERS Safety Report 18688274 (Version 7)
Quarter: 2021Q2

REPORT INFORMATION
  Report Type: Spontaneous
  Country: PL (occurrence: PL)
  Receive Date: 20201231
  Receipt Date: 20210518
  Transmission Date: 20210717
  Serious: Yes (Life-Threatening, Hospitalization, Other)
  Sender: FDA-Public Use
  Company Number: PL-AUROBINDO-AUR-APL-2020-063591

PATIENT
  Age: 69 Year
  Sex: Female

DRUGS (23)
  1. ACETYLSALICYLIC ACID [Interacting]
     Active Substance: ASPIRIN
     Indication: VIRAL INFECTION
     Dosage: UNK
     Route: 065
  2. ITRACONAZOLE. [Interacting]
     Active Substance: ITRACONAZOLE
     Indication: TINEA VERSICOLOUR
     Dosage: 100 MILLIGRAM, EVERY OTHER DAY
     Route: 065
  3. NIMESULIDE [Interacting]
     Active Substance: NIMESULIDE
     Indication: ANTIINFLAMMATORY THERAPY
  4. AMLODIPINE;INDAPAMIDE;PERINDOPRIL [Suspect]
     Active Substance: AMLODIPINE\INDAPAMIDE\PERINDOPRIL
     Indication: PRODUCT USED FOR UNKNOWN INDICATION
     Dosage: 1 DOSAGE FORM, ONCE A DAY
     Route: 048
  5. PERINDOPRIL TABLET [Interacting]
     Active Substance: PERINDOPRIL
     Indication: HYPERTENSION
     Dosage: 1 DOSAGE FORM, ONCE A DAY (MORNING)
     Route: 065
  6. ROSUVASTATIN. [Interacting]
     Active Substance: ROSUVASTATIN
     Indication: PRODUCT USED FOR UNKNOWN INDICATION
     Dosage: 10 MILLIGRAM, ONCE A DAY
     Route: 048
  7. DABIGATRAN [Interacting]
     Active Substance: DABIGATRAN
     Indication: ATRIAL FIBRILLATION
     Dosage: 150 MILLIGRAM, ONCE A DAY
     Route: 065
  8. PROPAFENONE. [Interacting]
     Active Substance: PROPAFENONE
     Indication: ATRIAL FIBRILLATION
     Dosage: 300 MILLIGRAM AS NECESSARY
     Route: 048
  9. DABIGATRAN [Interacting]
     Active Substance: DABIGATRAN
     Indication: PROPHYLAXIS
     Dosage: 150 MILLIGRAM, TWO TIMES A DAY
     Route: 065
  10. KETOPROFEN. [Interacting]
     Active Substance: KETOPROFEN
     Indication: ARTHRALGIA
  11. METOPROLOL FILM COTED TABLETS 100MG [Suspect]
     Active Substance: METOPROLOL
     Indication: HYPERTENSION
     Dosage: 100 MILLIGRAM, ONCE A DAY
     Route: 048
  12. ACETYLSALICYLIC ACID [Interacting]
     Active Substance: ASPIRIN
     Indication: INFECTION
  13. NIMESULIDE [Interacting]
     Active Substance: NIMESULIDE
     Indication: ANALGESIC INTERVENTION SUPPORTIVE THERAPY
     Dosage: 100 MILLIGRAM, EVERY OTHER DAY
     Route: 065
  14. NIMESULIDE [Interacting]
     Active Substance: NIMESULIDE
     Indication: INFLAMMATION
     Dosage: 100 MILLIGRAM, TWO TIMES A DAY
     Route: 065
  15. DIMENHYDRINATE. [Interacting]
     Active Substance: DIMENHYDRINATE
     Indication: PRODUCT USED FOR UNKNOWN INDICATION
     Dosage: 100 MILLIGRAM, TWO TIMES A DAY
     Route: 065
  16. ITRACONAZOLE. [Interacting]
     Active Substance: ITRACONAZOLE
     Dosage: 100 MILLIGRAM, TWO TIMES A DAY
     Route: 065
  17. METOPROLOL FILM COTED TABLETS 100MG [Interacting]
     Active Substance: METOPROLOL
     Dosage: 100 MILLIGRAM, TWO TIMES A DAY
     Route: 065
  18. DABIGATRAN [Interacting]
     Active Substance: DABIGATRAN
     Indication: ANTICOAGULANT THERAPY
     Dosage: 150 MILLIGRAM, EVERY OTHER DAY
     Route: 048
  19. KETOPROFEN. [Interacting]
     Active Substance: KETOPROFEN
     Indication: ANALGESIC THERAPY
     Dosage: UNK (AS NECESSARY)
     Route: 065
  20. TRIPLIXAM [Interacting]
     Active Substance: AMLODIPINE BESYLATE\INDAPAMIDE\PERINDOPRIL ARGININE
     Indication: HYPERTENSION
  21. NIMESULIDE [Interacting]
     Active Substance: NIMESULIDE
     Indication: ANALGESIC THERAPY
  22. NIMESULIDE [Interacting]
     Active Substance: NIMESULIDE
     Indication: PAIN
  23. TRIPLIXAM [Interacting]
     Active Substance: AMLODIPINE BESYLATE\INDAPAMIDE\PERINDOPRIL ARGININE
     Indication: PRODUCT USED FOR UNKNOWN INDICATION
     Dosage: 1 UNK, ONCE A DAY IN THE MORNING
     Route: 065

REACTIONS (16)
  - Asthenia [Recovered/Resolved]
  - Troponin increased [Recovered/Resolved]
  - Atrioventricular block complete [Recovered/Resolved]
  - Anaemia [Recovered/Resolved]
  - Cardiomyopathy [Recovered/Resolved]
  - Pallor [Recovered/Resolved]
  - Bradyarrhythmia [Recovered/Resolved]
  - Incorrect dose administered [Unknown]
  - Blood pressure decreased [Recovered/Resolved]
  - Gastritis erosive [Recovered/Resolved]
  - Syncope [Recovered/Resolved]
  - Gastrointestinal haemorrhage [Recovered/Resolved]
  - Leukocytosis [Recovered/Resolved]
  - Off label use [Unknown]
  - Drug interaction [Recovered/Resolved]
  - Product use issue [Unknown]

NARRATIVE: CASE EVENT DATE: 2020
